FAERS Safety Report 7432662-9 (Version None)
Quarter: 2011Q2

REPORT INFORMATION
  Report Type: 
  Country: None (occurrence: None)
  Receive Date: 20110422
  Receipt Date: 20110419
  Transmission Date: 20111010
  Serious: Yes (Hospitalization, Other)
  Sender: FDA-Public Use
  Company Number: US-ROCHE-552236

PATIENT
  Sex: Male
  Weight: 77.1 kg

DRUGS (3)
  1. ACCUTANE [Suspect]
     Indication: ACNE
     Route: 065
     Dates: start: 19850101, end: 19860101
  2. ACCUTANE [Suspect]
     Route: 065
     Dates: start: 19931025, end: 19940224
  3. ACCUTANE [Suspect]
     Route: 065
     Dates: start: 19960920, end: 19961220

REACTIONS (8)
  - SMALL INTESTINAL OBSTRUCTION [None]
  - CROHN'S DISEASE [None]
  - INFLAMMATORY BOWEL DISEASE [None]
  - NEPHROLITHIASIS [None]
  - DEPRESSION [None]
  - ORAL HERPES [None]
  - SUICIDAL IDEATION [None]
  - COLITIS ULCERATIVE [None]
